FAERS Safety Report 10519843 (Version 1)
Quarter: 2014Q4

REPORT INFORMATION
  Report Type: Spontaneous
  Country: GB (occurrence: GB)
  Receive Date: 20141015
  Receipt Date: 20141015
  Transmission Date: 20150528
  Serious: Yes (Death, Other)
  Sender: FDA-Public Use
  Company Number: GB-TEVA-514851ISR

PATIENT
  Age: 56 Year
  Sex: Male

DRUGS (8)
  1. TRAMADOL [Suspect]
     Active Substance: TRAMADOL
     Indication: BACK PAIN
     Dosage: UNK
  2. AMITRIPTYLINE HYDROCHLORIDE. [Concomitant]
     Active Substance: AMITRIPTYLINE HYDROCHLORIDE
     Dosage: UNK
  3. PARACETAMOL [Concomitant]
     Active Substance: ACETAMINOPHEN
     Dosage: UNK
  4. TRAMADOL [Suspect]
     Active Substance: TRAMADOL
     Dosage: 7 DOSAGE FORMS DAILY;
  5. CLOZARIL [Suspect]
     Active Substance: CLOZAPINE
     Indication: SCHIZOPHRENIA
     Dosage: UNK
     Route: 048
     Dates: start: 20130307
  6. LORAZEPAM. [Concomitant]
     Active Substance: LORAZEPAM
     Dosage: UNK
  7. CO-BENELDOPA [Concomitant]
     Active Substance: BENSERAZIDE HYDROCHLORIDE\LEVODOPA
     Dosage: UNK
  8. MORPHINE SULPHATE [Concomitant]
     Active Substance: MORPHINE SULFATE
     Dosage: UNK

REACTIONS (4)
  - Unresponsive to stimuli [Unknown]
  - Sudden death [Fatal]
  - Hallucination [Unknown]
  - Confusional state [Unknown]

NARRATIVE: CASE EVENT DATE: 20130512
